FAERS Safety Report 13747427 (Version 1)
Quarter: 2017Q3

REPORT INFORMATION
  Report Type: Spontaneous
  Country: CN (occurrence: CN)
  Receive Date: 20170712
  Receipt Date: 20170712
  Transmission Date: 20171127
  Serious: Yes (Hospitalization, Other)
  Sender: FDA-Public Use
  Company Number: CN-BAYER-2017-130763

PATIENT
  Age: 66 Year
  Sex: Male
  Weight: 52 kg

DRUGS (5)
  1. INSULIN GLARGINE [Interacting]
     Active Substance: INSULIN GLARGINE
     Dosage: 10 U, QD
  2. GLUCOBAY [Suspect]
     Active Substance: ACARBOSE
     Indication: TYPE 2 DIABETES MELLITUS
     Dosage: 0.3 G, TID
     Route: 048
     Dates: start: 20170428, end: 20170429
  3. INSULIN ASPART [Interacting]
     Active Substance: INSULIN ASPART
     Dosage: 12 U, TID
     Route: 058
  4. ENALAPRIL MALEATE. [Concomitant]
     Active Substance: ENALAPRIL MALEATE
     Dosage: 1 DF, QD
  5. FOLIC ACID. [Concomitant]
     Active Substance: FOLIC ACID
     Dosage: 1 DF, QD

REACTIONS (1)
  - Hypoglycaemic coma [Recovering/Resolving]

NARRATIVE: CASE EVENT DATE: 20170429
